FAERS Safety Report 13574310 (Version 1)
Quarter: 2017Q2

REPORT INFORMATION
  Report Type: Spontaneous
  Country: GB (occurrence: GB)
  Receive Date: 20170523
  Receipt Date: 20170523
  Transmission Date: 20170830
  Serious: Yes (Other)
  Sender: FDA-Public Use
  Company Number: GB-TEVA-768978ACC

PATIENT
  Age: 61 Year
  Sex: Female
  Weight: 88.9 kg

DRUGS (8)
  1. LETROZOLE. [Suspect]
     Active Substance: LETROZOLE
     Indication: OESTROGEN RECEPTOR POSITIVE BREAST CANCER
     Dosage: 1 DOSAGE FORMS DAILY;
     Route: 048
     Dates: start: 20161001, end: 20170301
  2. CHLORPHENAMINE [Concomitant]
     Active Substance: CHLORPHENIRAMINE MALEATE
  3. THYROXINE [Concomitant]
     Active Substance: LEVOTHYROXINE
  4. BEZAFIBRATE [Concomitant]
     Active Substance: BEZAFIBRATE
  5. PARACETAMOL [Concomitant]
     Active Substance: ACETAMINOPHEN
  6. ANASTROZOLE. [Suspect]
     Active Substance: ANASTROZOLE
     Indication: OESTROGEN RECEPTOR POSITIVE BREAST CANCER
     Dosage: 1 DOSAGE FORMS DAILY;
     Route: 048
     Dates: start: 20170401, end: 20170419
  7. COD LIVER OIL [Concomitant]
     Active Substance: COD LIVER OIL
  8. IBUPROFEN. [Concomitant]
     Active Substance: IBUPROFEN

REACTIONS (6)
  - Fibromyalgia [Recovered/Resolved with Sequelae]
  - Arthralgia [Recovered/Resolved with Sequelae]
  - Hot flush [Recovered/Resolved]
  - Abnormal weight gain [Recovering/Resolving]
  - Irritability [Recovered/Resolved]
  - Myalgia [Unknown]
